FAERS Safety Report 10003806 (Version 1)
Quarter: 2014Q1

REPORT INFORMATION
  Report Type: Spontaneous
  Country: US (occurrence: US)
  Receive Date: 20140312
  Receipt Date: 20140312
  Transmission Date: 20141002
  Serious: Yes (Hospitalization, Other)
  Sender: FDA-Public Use
  Company Number: US-BAXTER-2014BAX011580

PATIENT
  Sex: Female

DRUGS (2)
  1. DIANEAL PD2 [Suspect]
     Indication: PERITONEAL DIALYSIS
     Route: 033
     Dates: start: 2007
  2. DIANEAL PD2 [Suspect]
     Route: 033
     Dates: start: 20140301

REACTIONS (3)
  - Gastroenteritis viral [Unknown]
  - Peritonitis bacterial [Recovering/Resolving]
  - Diarrhoea [Unknown]
